FAERS Safety Report 8395673-5 (Version None)
Quarter: 2012Q2

REPORT INFORMATION
  Report Type: 
  Country: None (occurrence: None)
  Receive Date: 20120530
  Receipt Date: 20120211
  Transmission Date: 20120825
  Serious: No
  Sender: FDA-Public Use
  Company Number: US-GLAXOSMITHKLINE-A0965921A

PATIENT
  Sex: Male

DRUGS (4)
  1. ROFLUMILAST [Concomitant]
  2. XANAX [Concomitant]
  3. XOPENEX [Concomitant]
     Indication: PRODUCT USED FOR UNKNOWN INDICATION
  4. ALBUTEROL [Suspect]
     Indication: PRODUCT USED FOR UNKNOWN INDICATION
     Route: 055

REACTIONS (3)
  - FATIGUE [None]
  - BURNOUT SYNDROME [None]
  - ANXIETY [None]
